FAERS Safety Report 25379089 (Version 1)
Quarter: 2025Q2

REPORT INFORMATION
  Report Type: Spontaneous
  Country: US (occurrence: US)
  Receive Date: 20250530
  Receipt Date: 20250530
  Transmission Date: 20250717
  Serious: No
  Sender: BAUSCH AND LOMB
  Company Number: US-BAUSCHBL-2025BNL009343

PATIENT
  Age: 90 Year
  Sex: Male

DRUGS (1)
  1. DORZOLAMIDE HYDROCHLORIDE AND TIMOLOL MALEATE [Suspect]
     Active Substance: DORZOLAMIDE HYDROCHLORIDE\TIMOLOL MALEATE
     Indication: Glaucoma
     Dosage: 1 DROP IN EACH EYE TWICE A DAY
     Route: 047
     Dates: start: 2024

REACTIONS (1)
  - Eye pain [Recovered/Resolved]
